FAERS Safety Report 12884521 (Version 1)
Quarter: 2016Q4

REPORT INFORMATION
  Report Type: Spontaneous
  Country: US (occurrence: US)
  Receive Date: 20161025
  Receipt Date: 20161025
  Transmission Date: 20170207
  Serious: No
  Sender: FDA-Public Use
  Company Number: None

PATIENT
  Age: 36 Year
  Sex: Female
  Weight: 97.52 kg

DRUGS (2)
  1. MIRENA [Suspect]
     Active Substance: LEVONORGESTREL
     Dates: start: 20150729, end: 20161012
  2. DAILY MULTIVITAMIN [Concomitant]
     Active Substance: VITAMINS

REACTIONS (10)
  - Vaginal haemorrhage [None]
  - Weight increased [None]
  - Dizziness [None]
  - Headache [None]
  - Alopecia [None]
  - Acne [None]
  - Abdominal distension [None]
  - Food craving [None]
  - Mood swings [None]
  - Rash generalised [None]

NARRATIVE: CASE EVENT DATE: 20150729
